FAERS Safety Report 6900438-4 (Version None)
Quarter: 2010Q3

REPORT INFORMATION
  Report Type: 
  Country: None (occurrence: None)
  Receive Date: 20100803
  Receipt Date: 20100722
  Transmission Date: 20110219
  Serious: Yes (Other)
  Sender: FDA-Public Use
  Company Number: GB-PFIZER INC-2010046125

PATIENT
  Sex: Male

DRUGS (6)
  1. VIAGRA [Suspect]
     Dosage: UNK
  2. METFORMIN HYDROCHLORIDE [Concomitant]
     Dosage: 500 MG, UNK
  3. CLOPIDOGREL [Concomitant]
     Dosage: 75 MG, 1X/DAY
  4. BISOPROLOL [Concomitant]
     Dosage: 1.25 MG, UNK
  5. RAMIPRIL [Concomitant]
     Dosage: 2.5 MG, 1X/DAY
  6. ACETYLSALICYLIC ACID [Concomitant]
     Dosage: 25 MG, 1X/DAY

REACTIONS (4)
  - BLOOD GLUCOSE INCREASED [None]
  - CORONARY ARTERY STENOSIS [None]
  - DRUG INEFFECTIVE [None]
  - MEDICATION ERROR [None]
